FAERS Safety Report 10420647 (Version 1)
Quarter: 2014Q3

REPORT INFORMATION
  Report Type: Spontaneous
  Country: US (occurrence: None)
  Receive Date: 20140708
  Receipt Date: 20140708
  Transmission Date: 20150326
  Serious: Yes (Other)
  Sender: FDA-Public Use
  Company Number: 2014P1001323

PATIENT
  Age: 15 Year
  Sex: Male
  Weight: 81.19 kg

DRUGS (2)
  1. MYORISAN [Suspect]
     Active Substance: ISOTRETINOIN
     Indication: ACNE
  2. ALBUTEROL. [Concomitant]
     Active Substance: ALBUTEROL

REACTIONS (3)
  - Lip dry [None]
  - Tibia fracture [None]
  - Dry skin [None]

NARRATIVE: CASE EVENT DATE: 2014
